FAERS Safety Report 13584749 (Version 4)
Quarter: 2018Q1

REPORT INFORMATION
  Report Type: Report from Study
  Country: NL (occurrence: NL)
  Receive Date: 20170526
  Receipt Date: 20180216
  Transmission Date: 20180508
  Serious: Yes (Hospitalization)
  Sender: FDA-Public Use
  Company Number: NL-ROCHE-1936880

PATIENT
  Age: 56 Year
  Sex: Female
  Weight: 69.3 kg

DRUGS (12)
  1. ATEZOLIZUMAB. [Suspect]
     Active Substance: ATEZOLIZUMAB
     Indication: NEOPLASM
     Dosage: MOST RECENT DOSE: 04 MAY 2017 AT 14:32
     Route: 042
     Dates: start: 20170504
  2. VITAMIN B11 [Concomitant]
     Indication: ANAEMIA
     Route: 065
     Dates: start: 20170317
  3. NADROPARIN [Concomitant]
     Active Substance: NADROPARIN
     Indication: THROMBOSIS
     Route: 042
     Dates: start: 20170517
  4. IPILIMUMAB [Suspect]
     Active Substance: IPILIMUMAB
     Indication: NEOPLASM
     Dosage: STARTING SINGLE DOSE OF 1 MG/KG
     Route: 042
  5. OXYCODON [Concomitant]
     Active Substance: OXYCODONE
     Indication: TUMOUR PAIN
     Route: 065
     Dates: start: 20170517
  6. PETHIDINE [Concomitant]
     Active Substance: MEPERIDINE
     Indication: PAIN
     Route: 042
     Dates: start: 20170519
  7. EUTHYROX [Concomitant]
     Active Substance: LEVOTHYROXINE SODIUM
     Indication: HYPERTHYROIDISM
     Route: 065
     Dates: start: 20170317
  8. HYPERICUM [Concomitant]
     Active Substance: ST. JOHN^S WORT
     Indication: DEPRESSION
     Route: 065
     Dates: start: 20170413
  9. CLEMASTINE [Concomitant]
     Active Substance: CLEMASTINE
     Indication: COUGH
     Route: 042
     Dates: start: 20170517
  10. BEVACIZUMAB. [Suspect]
     Active Substance: BEVACIZUMAB
     Indication: NEOPLASM
     Dosage: MOST RECENT DOSE: 400 MG ON 04/MAY/2016 AT 16:16.
     Route: 042
     Dates: start: 20170504
  11. PEG-INTERFERON ALFA 2A [Suspect]
     Active Substance: PEGINTERFERON ALFA-2A
     Indication: NEOPLASM
     Dosage: MOST RECENT DOSE: 80 MU AT 11:34
     Route: 058
     Dates: start: 20170504
  12. FERROFUMARAAT [Concomitant]
     Indication: ANAEMIA
     Route: 065
     Dates: start: 20170317

REACTIONS (1)
  - Pyrexia [Recovered/Resolved]

NARRATIVE: CASE EVENT DATE: 20170513
